FAERS Safety Report 5267115-X (Version None)
Quarter: 2007Q1

REPORT INFORMATION
  Report Type: 
  Country: None (occurrence: None)
  Receive Date: 20070316
  Receipt Date: 20070309
  Transmission Date: 20070707
  Serious: Yes (Hospitalization)
  Sender: FDA-Public Use
  Company Number: ES-BRISTOL-MYERS SQUIBB COMPANY-13690300

PATIENT
  Age: 58 Year
  Sex: Female
  Weight: 53 kg

DRUGS (3)
  1. PACLITAXEL [Suspect]
     Route: 042
     Dates: start: 20070201
  2. XELODA [Suspect]
     Route: 048
     Dates: start: 20070201
  3. EXEMESTANE [Suspect]
     Route: 048
     Dates: start: 20060101

REACTIONS (1)
  - DIARRHOEA [None]
